FAERS Safety Report 13593302 (Version 1)
Quarter: 2017Q2

REPORT INFORMATION
  Report Type: Other
  Country: None (occurrence: US)
  Receive Date: 20170530
  Receipt Date: 20170530
  Transmission Date: 20170830
  Serious: Yes (Life-Threatening)
  Sender: FDA-Public Use
  Company Number: US-B. BRAUN MEDICAL INC.-2021359

PATIENT
  Age: 57 Year
  Sex: Female

DRUGS (3)
  1. METRONIDAZOLE. [Suspect]
     Active Substance: METRONIDAZOLE
     Indication: COLITIS
  2. CEFOXITIN [Suspect]
     Active Substance: CEFOXITIN SODIUM
  3. MORPHINE SULFATE. [Suspect]
     Active Substance: MORPHINE SULFATE

REACTIONS (6)
  - Unresponsive to stimuli [None]
  - Anaphylactic reaction [None]
  - Chest pain [None]
  - Nausea [None]
  - Dyspnoea [None]
  - Pallor [None]
